FAERS Safety Report 13885019 (Version 1)
Quarter: 2017Q3

REPORT INFORMATION
  Report Type: Spontaneous
  Country: PL (occurrence: PL)
  Receive Date: 20170821
  Receipt Date: 20170821
  Transmission Date: 20171127
  Serious: Yes (Other)
  Sender: FDA-Public Use
  Company Number: PL-PFIZER INC-2017355647

PATIENT
  Age: 68 Year
  Sex: Female

DRUGS (9)
  1. SUNITINIB MALATE. [Suspect]
     Active Substance: SUNITINIB MALATE
     Dosage: 37.5 MG, CYCLIC (DAILY AT 4/2 SCHEDULE)
     Dates: start: 201607
  2. SUNITINIB MALATE. [Suspect]
     Active Substance: SUNITINIB MALATE
     Dosage: 50 MG, CYCLIC (DAILY AT 2/1 SCHEDULE)
     Dates: start: 201610
  3. SUNITINIB MALATE. [Suspect]
     Active Substance: SUNITINIB MALATE
     Dosage: 50 MG, CYCLIC (DAILY AT 2/1 SCHEDULE)
     Dates: start: 201702
  4. SUNITINIB MALATE. [Suspect]
     Active Substance: SUNITINIB MALATE
     Dosage: 37.5 MG, CYCLIC (DAILY AT 4/2 SCHEDULE)
     Dates: start: 2016
  5. SUNITINIB MALATE. [Suspect]
     Active Substance: SUNITINIB MALATE
     Indication: CLEAR CELL RENAL CELL CARCINOMA
     Dosage: 50 MG, CYCLIC (DAILY AT 4/2 SCHEDULE)
     Dates: start: 201602
  6. SUNITINIB MALATE. [Suspect]
     Active Substance: SUNITINIB MALATE
     Dosage: 50 MG, CYCLIC (DAILY AT 4/2 SCHEDULE)
     Dates: start: 201605
  7. SUNITINIB MALATE. [Suspect]
     Active Substance: SUNITINIB MALATE
     Dosage: 50 MG, CYCLIC (DAILY AT 4/2 SCHEDULE)
     Dates: start: 201603
  8. SUNITINIB MALATE. [Suspect]
     Active Substance: SUNITINIB MALATE
     Dosage: 50 MG, CYCLIC (DAILY AT 2/1 SCHEDULE)
     Dates: start: 201609
  9. SUNITINIB MALATE. [Suspect]
     Active Substance: SUNITINIB MALATE
     Dosage: 50 MG, CYCLIC (DAILY AT 2/1 SCHEDULE)
     Dates: start: 201612

REACTIONS (9)
  - Neoplasm progression [Unknown]
  - Mucosal inflammation [Unknown]
  - Bone marrow toxicity [Unknown]
  - Neutropenia [Unknown]
  - Hypothyroidism [Unknown]
  - Thrombocytopenia [Unknown]
  - Hypertension [Recovered/Resolved]
  - Palmar-plantar erythrodysaesthesia syndrome [Unknown]
  - Fistula [Recovering/Resolving]

NARRATIVE: CASE EVENT DATE: 201603
